FAERS Safety Report 4389874-0 (Version None)
Quarter: 2004Q2

REPORT INFORMATION
  Report Type: 
  Country: None (occurrence: None)
  Receive Date: 20040630
  Receipt Date: 20040630
  Transmission Date: 20050107
  Serious: Yes (Death)
  Sender: FDA-Public Use
  Company Number: None

PATIENT
  Sex: Female
  Weight: 48.0813 kg

DRUGS (7)
  1. ZYPREXA [Suspect]
     Indication: AGITATION
     Dosage: 5 MG QHS ORAL
     Route: 048
     Dates: start: 20030501, end: 20030501
  2. ZYPREXA [Suspect]
     Indication: HALLUCINATION
     Dosage: 5 MG QHS ORAL
     Route: 048
     Dates: start: 20030501, end: 20030501
  3. THYROID TAB [Concomitant]
  4. OSCAL [Concomitant]
  5. MIACALCIN [Concomitant]
  6. PLAVIX [Concomitant]
  7. NACL [Concomitant]

REACTIONS (8)
  - ABNORMAL CHEST SOUND [None]
  - AGITATION [None]
  - APNOEA [None]
  - DRUG EFFECT DECREASED [None]
  - DYSKINESIA [None]
  - DYSTONIA [None]
  - HEART RATE INCREASED [None]
  - INSOMNIA [None]
